FAERS Safety Report 5170207-7 (Version None)
Quarter: 2006Q4

REPORT INFORMATION
  Report Type: 
  Country: None (occurrence: None)
  Receive Date: 20061212
  Receipt Date: 20061116
  Transmission Date: 20070319
  Serious: Yes (Other)
  Sender: FDA-Public Use
  Company Number: GR-ELI_LILLY_AND_COMPANY-GR200611003328

PATIENT
  Age: 60 Year
  Sex: Female

DRUGS (2)
  1. CYMBALTA [Suspect]
     Indication: DEPRESSION
     Dosage: 60 MG, DAILY (1/D)
     Route: 048
     Dates: start: 20060901, end: 20061101
  2. YENTREVE [Suspect]
     Indication: URINARY INCONTINENCE
     Dosage: 80 MG, DAILY (1/D)
     Route: 048
     Dates: start: 20061101, end: 20061101

REACTIONS (2)
  - ACCIDENTAL OVERDOSE [None]
  - AMNESIA [None]
